FAERS Safety Report 7491307-2 (Version None)
Quarter: 2011Q2

REPORT INFORMATION
  Report Type: 
  Country: None (occurrence: None)
  Receive Date: 20110519
  Receipt Date: 20110509
  Transmission Date: 20111010
  Serious: Yes (Hospitalization)
  Sender: FDA-Public Use
  Company Number: B0717763A

PATIENT
  Sex: Female

DRUGS (1)
  1. LAMICTAL [Suspect]
     Indication: EPILEPSY
     Route: 048
     Dates: start: 20070101, end: 20110407

REACTIONS (6)
  - RASH MACULO-PAPULAR [None]
  - GENITAL LESION [None]
  - STEVENS-JOHNSON SYNDROME [None]
  - ORAL DISORDER [None]
  - SKIN DISORDER [None]
  - SKIN LESION [None]
